FAERS Safety Report 7521896-0 (Version None)
Quarter: 2011Q2

REPORT INFORMATION
  Report Type: 
  Country: None (occurrence: None)
  Receive Date: 20110603
  Receipt Date: 20110520
  Transmission Date: 20111010
  Serious: Yes (Hospitalization)
  Sender: FDA-Public Use
  Company Number: DE-RANBAXY-2009RR-20381

PATIENT
  Age: 89 Year
  Sex: Female

DRUGS (8)
  1. DILTIAZEM [Suspect]
     Indication: CORONARY ARTERY DISEASE
     Dosage: 240 MG, QD
     Route: 048
     Dates: end: 20080712
  2. METOPROLOL TARTRATE [Suspect]
     Indication: CARDIAC FAILURE
     Dosage: 95 MG, QD
     Route: 048
     Dates: end: 20080712
  3. BRONCHORETARD [Concomitant]
     Indication: ASTHMA
     Dosage: 350 MG, BID
     Route: 048
  4. DIGITOXIN TAB [Suspect]
     Indication: CARDIAC FAILURE
     Dosage: 0.07 MG, QD
     Route: 048
     Dates: end: 20080712
  5. METFORMIN HCL [Concomitant]
     Indication: TYPE 2 DIABETES MELLITUS
     Dosage: 1000 MG, QD
     Route: 048
     Dates: end: 20080712
  6. ALLOPURINOL [Concomitant]
     Indication: HYPERURICAEMIA
     Dosage: 300 MG, QD
     Route: 048
     Dates: end: 20080712
  7. METOPROLOL TARTRATE [Suspect]
     Dosage: UNK
  8. SOTALOL HCL [Suspect]
     Indication: ARRHYTHMIA PROPHYLAXIS
     Dosage: 80 MG, BID
     Route: 048
     Dates: end: 20080712

REACTIONS (5)
  - MALAISE [None]
  - BRADYCARDIA [None]
  - DRUG INTERACTION [None]
  - ASTHENIA [None]
  - SYNCOPE [None]
